FAERS Safety Report 21886173 (Version 1)
Quarter: 2023Q1

REPORT INFORMATION
  Report Type: Spontaneous
  Country: FR (occurrence: FR)
  Receive Date: 20230119
  Receipt Date: 20230119
  Transmission Date: 20230417
  Serious: Yes (Death)
  Sender: FDA-Public Use
  Company Number: FR-BAXTER-2022BAX026362

PATIENT
  Age: 80 Year
  Sex: Male

DRUGS (3)
  1. BORTEZOMIB [Suspect]
     Active Substance: BORTEZOMIB
     Indication: Product used for unknown indication
     Dosage: UNK, 2.5 MG/DOSE D1 D4 D8 D11, (TREATMENT LINE NUMBER 1, DURATION: 0.8 MONTHS)
     Route: 065
     Dates: end: 20201201
  2. DEXAMETHASONE [Suspect]
     Active Substance: DEXAMETHASONE
     Indication: Product used for unknown indication
     Dosage: UNK, (TREATMENT LINE NUMBER 1, DURATION: 0.8 MONTHS)
     Route: 065
     Dates: end: 20201201
  3. CYCLOPHOSPHAMIDE [Suspect]
     Active Substance: CYCLOPHOSPHAMIDE
     Indication: Product used for unknown indication
     Dosage: UNK, 900 MG/DOSE D8 AND D15, (TREATMENT LINE NUMBER 1, DURATION: 0.8 MONTHS)
     Route: 065
     Dates: end: 20201201

REACTIONS (1)
  - Disease progression [Fatal]
